FAERS Safety Report 8515601-9 (Version None)
Quarter: 2012Q3

REPORT INFORMATION
  Report Type: 
  Country: None (occurrence: None)
  Receive Date: 20120717
  Receipt Date: 20120711
  Transmission Date: 20120928
  Serious: Yes (Hospitalization)
  Sender: FDA-Public Use
  Company Number: PHHY2012FR059799

PATIENT
  Sex: Male

DRUGS (16)
  1. NEORAL [Suspect]
     Dosage: 25 MG, BID
     Dates: start: 20120501
  2. CERTICAN [Concomitant]
     Dosage: 0.75MG IN THE MORNING AND 0.5MG IN THE EVENING
     Dates: start: 20070101
  3. PREDNISOLONE [Concomitant]
     Dosage: 10 MG, DAILY
     Dates: start: 20070201
  4. LASIX [Concomitant]
     Dosage: 40 MG, BID
     Dates: start: 20120201
  5. PRAVASTATIN [Concomitant]
     Dates: start: 20070101
  6. LANTUS [Concomitant]
  7. CALCIDIA [Concomitant]
     Dosage: 1 DF, QD
     Dates: start: 20110501
  8. NEORAL [Suspect]
     Dosage: 50 MG, BID
     Route: 048
     Dates: start: 20070724, end: 20120522
  9. IRBESARTAN [Concomitant]
     Dosage: 1 DF, QD
     Dates: start: 20110101
  10. NOVORAPID [Concomitant]
  11. EUPRESSYL [Concomitant]
     Dosage: 60 MG, BID
     Dates: start: 20070101
  12. OMEPRAZOLE [Concomitant]
     Dosage: 1 DF, QD
     Dates: start: 20110101
  13. IRBESARTAN [Concomitant]
     Dates: start: 20120101
  14. BACTRIM DS [Concomitant]
     Dates: start: 20120101
  15. FUNGIZONE [Concomitant]
     Route: 048
     Dates: start: 20120301
  16. DEDROGYL [Concomitant]
     Dosage: 10 GTT, DAILY
     Dates: start: 20110501

REACTIONS (9)
  - CONVULSION [None]
  - VOMITING [None]
  - AUTONOMIC NERVOUS SYSTEM IMBALANCE [None]
  - MALAISE [None]
  - CHOLELITHIASIS [None]
  - ABDOMINAL PAIN [None]
  - CHOLANGITIS [None]
  - ORTHOSTATIC HYPOTENSION [None]
  - CHOLECYSTITIS [None]
